FAERS Safety Report 12326540 (Version 1)
Quarter: 2016Q2

REPORT INFORMATION
  Report Type: Spontaneous
  Country: US (occurrence: None)
  Receive Date: 20160502
  Receipt Date: 20160502
  Transmission Date: 20160815
  Serious: No
  Sender: FDA-Public Use
  Company Number: None

PATIENT
  Age: 47 Year
  Sex: Female

DRUGS (2)
  1. LONSURF [Suspect]
     Active Substance: TIPIRACIL HYDROCHLORIDE\TRIFLURIDINE
     Indication: RECTAL CANCER
     Dosage: 40/16.38 MG TWICE A DAY ORAL
     Route: 048
     Dates: start: 20160202, end: 20160421
  2. LONSURF [Suspect]
     Active Substance: TIPIRACIL HYDROCHLORIDE\TRIFLURIDINE
     Indication: RECTAL CANCER
     Dosage: 15/6.14 MG TWICE A DAY ORAL
     Route: 048
     Dates: start: 20160202, end: 20160421

REACTIONS (1)
  - Disease progression [None]

NARRATIVE: CASE EVENT DATE: 20160421
